FAERS Safety Report 25110872 (Version 1)
Quarter: 2025Q1

REPORT INFORMATION
  Report Type: Spontaneous
  Country: TR (occurrence: TR)
  Receive Date: 20250324
  Receipt Date: 20250324
  Transmission Date: 20250409
  Serious: Yes (Death, Other)
  Sender: BIOGEN
  Company Number: TR-BIOGEN-2025BI01304583

PATIENT

DRUGS (1)
  1. SPINRAZA [Suspect]
     Active Substance: NUSINERSEN
     Indication: Product used for unknown indication
     Route: 050
     Dates: end: 20250228

REACTIONS (2)
  - Respiratory failure [Fatal]
  - Hypotonia [Unknown]
